FAERS Safety Report 9356756 (Version 1)
Quarter: 2013Q2

REPORT INFORMATION
  Report Type: Report from Study
  Country: AU (occurrence: AU)
  Receive Date: 20130619
  Receipt Date: 20130619
  Transmission Date: 20140414
  Serious: Yes (Death, Other)
  Sender: FDA-Public Use
  Company Number: PHHY2010AU49495

PATIENT
  Age: 45 Year
  Sex: Male
  Weight: 55 kg

DRUGS (13)
  1. CLOZARIL [Suspect]
     Indication: SCHIZOPHRENIA
     Dosage: 550 MG
     Route: 048
     Dates: start: 20061027
  2. CLOZARIL [Suspect]
     Dosage: 650 MG, QD
     Route: 048
     Dates: start: 20061031
  3. BICOR [Concomitant]
     Dosage: UNK UKN, UNK
  4. ACE INHIBITOR [Concomitant]
     Dosage: UNK UKN, UNK
  5. RAMIPRIL [Concomitant]
     Dosage: 5 MG, UNK
     Route: 048
  6. ASPIRIN [Concomitant]
     Dosage: 100 MG, QD
     Route: 048
     Dates: start: 2004
  7. BICON [Concomitant]
     Dosage: 10 MG, UNK
     Route: 048
     Dates: start: 2011
  8. LIPITOR [Concomitant]
     Dosage: 10 MG, UNK
     Route: 048
     Dates: start: 2009
  9. OLANZAPINE [Concomitant]
     Dosage: 10 MG, QD
     Route: 048
     Dates: start: 2009
  10. BISOPROLOL [Concomitant]
     Dosage: 10 MG, QD
     Route: 048
  11. MULTIVITAMINS [Concomitant]
     Dosage: 1 DF, QD
     Route: 048
  12. THIAMINE [Concomitant]
     Dosage: 100 MG, QD
     Route: 048
  13. ATORVASTATIN [Concomitant]
     Dosage: 10 MG, QD
     Route: 048

REACTIONS (11)
  - Cardiac arrest [Fatal]
  - Myocardial infarction [Fatal]
  - Cardiac aneurysm [Unknown]
  - Intracardiac thrombus [Unknown]
  - Left ventricular dysfunction [Unknown]
  - Diastolic dysfunction [Unknown]
  - Dilatation atrial [Unknown]
  - Ejection fraction decreased [Unknown]
  - Myocardial ischaemia [Unknown]
  - Blood pressure systolic decreased [Unknown]
  - Cardiomyopathy [Unknown]
